FAERS Safety Report 10474498 (Version 2)
Quarter: 2014Q4

REPORT INFORMATION
  Report Type: Spontaneous
  Country: BR (occurrence: BR)
  Receive Date: 20140924
  Receipt Date: 20141117
  Transmission Date: 20150528
  Serious: No
  Sender: FDA-Public Use
  Company Number: BR-B.I. PHARMACEUTICALS,INC./RIDGEFIELD-2014-BI-44660BR

PATIENT
  Age: 48 Year
  Sex: Female
  Weight: 90 kg

DRUGS (7)
  1. ENALAPRIL [Concomitant]
     Active Substance: ENALAPRIL
     Indication: PRODUCT USED FOR UNKNOWN INDICATION
     Route: 065
  2. ALENIA [Concomitant]
     Active Substance: BUDESONIDE\FORMOTEROL FUMARATE
     Indication: ASTHMA
     Route: 048
     Dates: start: 2013
  3. ASPIRIN. [Concomitant]
     Active Substance: ASPIRIN
     Indication: PRODUCT USED FOR UNKNOWN INDICATION
     Route: 065
  4. SINVASTATINA [Concomitant]
     Indication: PRODUCT USED FOR UNKNOWN INDICATION
     Route: 065
  5. AEROLIN [Concomitant]
     Active Substance: ALBUTEROL
     Indication: ASTHMA
     Dosage: 12 PUF
     Route: 048
     Dates: start: 2004
  6. NOEX [Concomitant]
     Active Substance: BUDESONIDE
     Indication: RHINITIS
     Dosage: 2 PUF
     Route: 048
  7. ATENSINA [Suspect]
     Active Substance: CLONIDINE
     Indication: HYPERTENSION
     Dosage: 0.15 MG
     Route: 048
     Dates: start: 20140904, end: 20140916

REACTIONS (12)
  - Nausea [Recovered/Resolved]
  - Memory impairment [Recovered/Resolved]
  - Dry mouth [Recovered/Resolved]
  - Paraesthesia [Recovered/Resolved]
  - Dizziness [Recovered/Resolved]
  - Somnolence [Recovered/Resolved]
  - Tongue disorder [Recovered/Resolved]
  - Syncope [Recovered/Resolved]
  - Swelling face [Recovered/Resolved]
  - Blood glucose increased [Recovered/Resolved]
  - Aphasia [Recovered/Resolved]
  - Hypertension [Recovered/Resolved]

NARRATIVE: CASE EVENT DATE: 20140904
